FAERS Safety Report 10917982 (Version 3)
Quarter: 2015Q4

REPORT INFORMATION
  Report Type: Report from Study
  Country: US (occurrence: US)
  Receive Date: 20150316
  Receipt Date: 20151118
  Transmission Date: 20160304
  Serious: Yes (Hospitalization, Other)
  Sender: FDA-Public Use
  Company Number: US-VERTEX PHARMACEUTICALS-2015-000762

PATIENT
  Age: 32 Year
  Sex: Female
  Weight: 74 kg

DRUGS (32)
  1. MOTRIN [Concomitant]
     Active Substance: IBUPROFEN
     Indication: PAIN
     Dosage: 600 MG, PRN
     Route: 048
     Dates: start: 20141108
  2. CHERATUSSIN [Concomitant]
     Active Substance: AMMONIUM CHLORIDE\DEXTROMETHORPHAN\SODIUM CITRATE
  3. MONTELUKAST [Concomitant]
     Active Substance: MONTELUKAST SODIUM
     Dosage: 10 MG, UNK
  4. KALYDECO [Suspect]
     Active Substance: IVACAFTOR
     Indication: CYSTIC FIBROSIS
     Dosage: 150 MG, BID
     Route: 048
     Dates: start: 20130826
  5. CAYSTON [Concomitant]
     Active Substance: AZTREONAM
     Dosage: 1 PUFF, TID, 1MONTHS OFF, 1 MONTH ON
     Route: 055
     Dates: start: 20120314
  6. DELTASONE [Concomitant]
     Active Substance: PREDNISONE
     Dosage: 2 DF T/F AND 1 DF QD
     Route: 048
     Dates: start: 20150121
  7. AZITHROMYCIN [Concomitant]
     Active Substance: AZITHROMYCIN ANHYDROUS
     Dosage: 250 MG, UNK
  8. OXYCODON [Concomitant]
     Active Substance: OXYCODONE
     Dosage: TAB 5 MG
  9. KALYDECO [Suspect]
     Active Substance: IVACAFTOR
     Dosage: 150 MG, BID
     Route: 048
     Dates: start: 20150624
  10. ZOFRAN [Concomitant]
     Active Substance: ONDANSETRON HYDROCHLORIDE
     Indication: NAUSEA
     Dosage: 4 MG, QID, PRN
     Route: 048
     Dates: start: 20131221
  11. ATIVAN [Concomitant]
     Active Substance: LORAZEPAM
     Indication: ANXIETY
     Dosage: 0.5-1 MG, TID, PRN
     Route: 048
  12. CEFPODOXIME [Concomitant]
     Active Substance: CEFPODOXIME
     Dosage: 200 MG, UNK
  13. FLUTICASONE [Concomitant]
     Active Substance: FLUTICASONE\FLUTICASONE PROPIONATE
     Dosage: 50MCG
  14. HYDROCO/APAP [Concomitant]
     Active Substance: ACETAMINOPHEN\HYDROCODONE
     Dosage: 5-500 MG
  15. LORAZEPAM. [Concomitant]
     Active Substance: LORAZEPAM
     Dosage: .5 MG, UNK
  16. MIRTAZAPINE. [Concomitant]
     Active Substance: MIRTAZAPINE
     Dosage: 15 MG, UNK
  17. PREDNISONE. [Concomitant]
     Active Substance: PREDNISONE
     Dosage: TAB 20 MG
  18. ADVAIR HFA [Concomitant]
     Active Substance: FLUTICASONE PROPIONATE\SALMETEROL XINAFOATE
     Dosage: 1 PUFFS, BID
     Route: 055
     Dates: start: 20091012
  19. FLONASE [Concomitant]
     Active Substance: FLUTICASONE PROPIONATE
     Dosage: 2 SPRAYS, QD
     Route: 055
  20. PROVENTIL HFA [Concomitant]
     Active Substance: ALBUTEROL SULFATE
     Dosage: 2-4 PUFFS, Q4HRS
     Route: 055
     Dates: start: 20140606
  21. ULTRAM [Concomitant]
     Active Substance: TRAMADOL HYDROCHLORIDE
     Dosage: 50 MG, BID, PRN
     Route: 048
     Dates: start: 20140429
  22. OXYCO/APAP [Concomitant]
     Dosage: TAB 10-325 MG
  23. PREDNISONE. [Concomitant]
     Active Substance: PREDNISONE
     Dosage: TAB 10 MG
  24. PHENERGAN [Concomitant]
     Active Substance: PROMETHAZINE HYDROCHLORIDE
     Indication: NAUSEA
     Dosage: 25 MG, QID, PRN,
     Route: 048
     Dates: start: 20121217
  25. SINGULAIR [Concomitant]
     Active Substance: MONTELUKAST SODIUM
     Dosage: 10 MG, QD
     Route: 048
  26. ZITHROMAX [Concomitant]
     Active Substance: AZITHROMYCIN DIHYDRATE
     Dosage: 500 MG, M/W/F
     Route: 048
     Dates: start: 20141022
  27. COLACE [Concomitant]
     Active Substance: DOCUSATE SODIUM
     Dosage: 100 MG, BID
     Route: 048
     Dates: start: 20150121
  28. METRONIDAZOLE. [Concomitant]
     Active Substance: METRONIDAZOLE
     Dosage: 500 MG, UNK
  29. COMBIVENT [Concomitant]
     Active Substance: ALBUTEROL SULFATE\IPRATROPIUM BROMIDE
     Dosage: 2 PUFFS, EVERY 4HRS, PRN
     Route: 055
  30. VITAMIN D3 [Concomitant]
     Active Substance: CHOLECALCIFEROL
     Dosage: 2000 IU, QD
     Route: 048
     Dates: start: 20120323
  31. MORPHINE SULF [Concomitant]
     Active Substance: MORPHINE SULFATE
     Dosage: 15 MG, UNK
  32. OXYCO/APAP [Concomitant]
     Dosage: TAB 5-325MG

REACTIONS (2)
  - Abnormal faeces [Unknown]
  - Pancreatitis [Unknown]

NARRATIVE: CASE EVENT DATE: 201503
